FAERS Safety Report 7914022-7 (Version None)
Quarter: 2011Q4

REPORT INFORMATION
  Report Type: 
  Country: None (occurrence: None)
  Receive Date: 20111115
  Receipt Date: 20111103
  Transmission Date: 20120403
  Serious: Yes (Hospitalization)
  Sender: FDA-Public Use
  Company Number: US-BAYER-2011-029691

PATIENT
  Age: 20 Year
  Sex: Female
  Weight: 61.224 kg

DRUGS (12)
  1. YAZ [Suspect]
     Indication: PREMENSTRUAL SYNDROME
  2. ATIVAN [Concomitant]
  3. HYOSCYAMINE [Concomitant]
     Indication: GASTROINTESTINAL DISORDER
     Dosage: 125 MG, UNK
     Route: 048
     Dates: start: 20060101, end: 20070101
  4. LANTUS [Concomitant]
     Indication: TYPE 1 DIABETES MELLITUS
     Dosage: DAILY DOSE 25 U
     Route: 058
  5. BROVEX [Concomitant]
     Route: 048
  6. PRILOSEC [Concomitant]
     Dosage: UNK
     Dates: start: 20061106
  7. BELLATAL [Concomitant]
     Route: 048
  8. KLONOPIN [Concomitant]
  9. PREVACID [Concomitant]
     Dosage: UNK
     Dates: start: 20061106
  10. HUMALOG [Concomitant]
     Indication: TYPE 1 DIABETES MELLITUS
     Dosage: DAILY DOSE 100 U
     Route: 058
     Dates: start: 20040101
  11. YAZ [Suspect]
     Indication: CONTRACEPTION
     Dosage: UNK
     Route: 048
     Dates: start: 20061201, end: 20071201
  12. ZOLOFT [Concomitant]

REACTIONS (5)
  - INJURY [None]
  - GALLBLADDER DISORDER [None]
  - PAIN [None]
  - CHOLECYSTITIS CHRONIC [None]
  - EMOTIONAL DISTRESS [None]
